FAERS Safety Report 10603192 (Version 2)
Quarter: 2015Q1

REPORT INFORMATION
  Report Type: Spontaneous
  Country: IT (occurrence: IT)
  Receive Date: 20141124
  Receipt Date: 20150109
  Transmission Date: 20150720
  Serious: Yes (Life-Threatening)
  Sender: FDA-Public Use
  Company Number: IT-PFIZER INC-2014320505

PATIENT
  Age: 31 Year
  Sex: Female
  Weight: 87 kg

DRUGS (1)
  1. UNASYN [Suspect]
     Active Substance: AMPICILLIN SODIUM\SULBACTAM SODIUM
     Indication: ANTIBIOTIC PROPHYLAXIS
     Dosage: 2 G, AS NEEDED
     Route: 040
     Dates: start: 20141109, end: 20141109

REACTIONS (3)
  - Dyspnoea [Recovered/Resolved]
  - Altered state of consciousness [Recovered/Resolved]
  - Mixed incontinence [Recovered/Resolved]

NARRATIVE: CASE EVENT DATE: 20141109
